FAERS Safety Report 19886071 (Version 1)
Quarter: 2021Q3

REPORT INFORMATION
  Report Type: Spontaneous
  Country: PL (occurrence: PL)
  Receive Date: 20210928
  Receipt Date: 20210928
  Transmission Date: 20211014
  Serious: Yes (Other)
  Sender: FDA-Public Use
  Company Number: NVSC2021PL217734

PATIENT
  Age: 21 Year
  Sex: Female
  Weight: 54 kg

DRUGS (4)
  1. METHOTREXATE. [Suspect]
     Active Substance: METHOTREXATE
     Indication: ANKYLOSING SPONDYLITIS
     Dosage: 10 MG, QW
     Route: 048
     Dates: start: 20180228
  2. BENEPALI [Suspect]
     Active Substance: ETANERCEPT
     Indication: ANKYLOSING SPONDYLITIS
     Dosage: 50 MG, QW
     Route: 058
     Dates: start: 20180405
  3. SULFASALAZINE. [Suspect]
     Active Substance: SULFASALAZINE
     Indication: ANKYLOSING SPONDYLITIS
     Dosage: 2 DF, Q12H
     Route: 048
     Dates: start: 20180104
  4. FOLIC ACID. [Suspect]
     Active Substance: FOLIC ACID
     Indication: ANKYLOSING SPONDYLITIS
     Dosage: UNK (QW)
     Route: 048
     Dates: start: 20180228

REACTIONS (2)
  - Syncope [Recovered/Resolved]
  - Dizziness [Recovered/Resolved]

NARRATIVE: CASE EVENT DATE: 20180607
